FAERS Safety Report 13395224 (Version 1)
Quarter: 2017Q2

REPORT INFORMATION
  Report Type: Spontaneous
  Country: US (occurrence: US)
  Receive Date: 20170403
  Receipt Date: 20170403
  Transmission Date: 20170830
  Serious: No
  Sender: FDA-Public Use
  Company Number: US-PFIZER INC-2017135556

PATIENT
  Age: 11 Year
  Sex: Female

DRUGS (1)
  1. QUILLIVANT XR [Suspect]
     Active Substance: METHYLPHENIDATE HYDROCHLORIDE
     Dosage: UNK
     Dates: start: 201703

REACTIONS (7)
  - Disturbance in attention [Unknown]
  - Restlessness [Unknown]
  - Abnormal behaviour [Unknown]
  - Euphoric mood [Unknown]
  - Psychomotor hyperactivity [Unknown]
  - Headache [Unknown]
  - Logorrhoea [Unknown]

NARRATIVE: CASE EVENT DATE: 201703
